FAERS Safety Report 10023745 (Version 2)
Quarter: 2014Q3

REPORT INFORMATION
  Report Type: Spontaneous
  Country: SE (occurrence: SE)
  Receive Date: 20140320
  Receipt Date: 20140825
  Transmission Date: 20150326
  Serious: Yes (Other)
  Sender: FDA-Public Use
  Company Number: SE-MYLANLABS-2014S1005285

PATIENT

DRUGS (1)
  1. AZATHIOPRINE. [Suspect]
     Active Substance: AZATHIOPRINE
     Indication: COLITIS ULCERATIVE

REACTIONS (11)
  - Apathy [Unknown]
  - Musculoskeletal pain [Unknown]
  - Pyrexia [Unknown]
  - Alopecia [Unknown]
  - Dental caries [Unknown]
  - Depression [Unknown]
  - Pruritus [Unknown]
  - Pneumonia [Unknown]
  - Otitis media [Unknown]
  - Fatigue [Unknown]
  - Eczema [Unknown]
